FAERS Safety Report 6419586-0 (Version None)
Quarter: 2009Q4

REPORT INFORMATION
  Report Type: 
  Country: None (occurrence: None)
  Receive Date: 20091013
  Receipt Date: 20090428
  Transmission Date: 20100525
  Serious: Yes (Hospitalization)
  Sender: FDA-Public Use
  Company Number: 1000004973

PATIENT
  Age: 40 Year
  Sex: Female

DRUGS (8)
  1. LEXAPRO [Suspect]
     Indication: DEPRESSION
     Dosage: 20 MG (20 MG, 1 IN 1 D), ORAL, 1 ONCE, ORAL, 30 MG (30 MG, 1 IN 1 D), ORAL
     Route: 048
     Dates: start: 20050501, end: 20090101
  2. LEXAPRO [Suspect]
     Indication: DEPRESSION
     Dosage: 20 MG (20 MG, 1 IN 1 D), ORAL, 1 ONCE, ORAL, 30 MG (30 MG, 1 IN 1 D), ORAL
     Route: 048
     Dates: start: 20090124, end: 20090124
  3. LEXAPRO [Suspect]
     Indication: DEPRESSION
     Dosage: 20 MG (20 MG, 1 IN 1 D), ORAL, 1 ONCE, ORAL, 30 MG (30 MG, 1 IN 1 D), ORAL
     Route: 048
     Dates: start: 20090101
  4. BLINDED INVESTIGATIONAL MEDICINAL PRODUCT [Suspect]
     Indication: SCHIZOPHRENIA
     Dosage: ONCE, HIGH DOSE
     Dates: start: 20090124, end: 20090124
  5. BLINDED INVESTIGATIONAL MEDICINAL PRODUCT [Suspect]
     Indication: SCHIZOPHRENIA
     Dosage: ONCE, HIGH DOSE
     Dates: start: 20081210
  6. TYLENOL (CAPLET) [Concomitant]
  7. ALEVE [Concomitant]
  8. RISPERDAL [Concomitant]

REACTIONS (3)
  - HALLUCINATION, AUDITORY [None]
  - OVERDOSE [None]
  - SUICIDE ATTEMPT [None]
